FAERS Safety Report 10966445 (Version 2)
Quarter: 2015Q1

REPORT INFORMATION
  Report Type: Spontaneous
  Country: FR (occurrence: FR)
  Receive Date: 20150330
  Receipt Date: 20150331
  Transmission Date: 20150721
  Serious: Yes (Congenital Anomaly)
  Sender: FDA-Public Use
  Company Number: FR-009507513-1503FRA011264

PATIENT
  Age: 1 Day
  Sex: Male
  Weight: 3.46 kg

DRUGS (3)
  1. ACETAMINOPHEN. [Concomitant]
     Active Substance: ACETAMINOPHEN
     Dosage: UNK, ONCE
     Route: 064
     Dates: start: 20141219, end: 20141219
  2. OMEPRAZOLE. [Concomitant]
     Active Substance: OMEPRAZOLE
     Dosage: 20 MG, UNK
     Route: 064
     Dates: start: 20140901, end: 20141001
  3. NEXPLANON [Suspect]
     Active Substance: ETONOGESTREL
     Dosage: UNK
     Route: 064
     Dates: start: 20130205

REACTIONS (3)
  - Ventricular septal defect [Unknown]
  - Coarctation of the aorta [Unknown]
  - Foetal exposure during pregnancy [Recovered/Resolved]

NARRATIVE: CASE EVENT DATE: 20150205
